FAERS Safety Report 18868260 (Version 2)
Quarter: 2021Q1

REPORT INFORMATION
  Report Type: Spontaneous
  Country: US (occurrence: US)
  Receive Date: 20210209
  Receipt Date: 20210319
  Transmission Date: 20210420
  Serious: Yes (Other)
  Sender: FDA-Public Use
  Company Number: US-ASTRAZENECA-2021A026961

PATIENT
  Age: 27381 Day
  Sex: Male
  Weight: 68.5 kg

DRUGS (4)
  1. SYMBICORT [Suspect]
     Active Substance: BUDESONIDE\FORMOTEROL FUMARATE DIHYDRATE
     Indication: EMPHYSEMA
     Dosage: 160/4.5 2 PUFFS ONE AND A HALF MINUTES APART TWICE DAILY MORNING AND NIGHT
     Route: 055
  2. SYMBICORT [Suspect]
     Active Substance: BUDESONIDE\FORMOTEROL FUMARATE DIHYDRATE
     Indication: EMPHYSEMA
     Dosage: 160/4.5 2 PUFFS ONE AND A HALF MINUTES APART TWICE DAILY MORNING AND NIGHT
     Route: 055
     Dates: start: 20210201
  3. SYMBICORT [Suspect]
     Active Substance: BUDESONIDE\FORMOTEROL FUMARATE DIHYDRATE
     Indication: CHRONIC OBSTRUCTIVE PULMONARY DISEASE
     Dosage: 160/4.5 2 PUFFS ONE AND A HALF MINUTES APART TWICE DAILY MORNING AND NIGHT
     Route: 055
     Dates: start: 20210201
  4. SYMBICORT [Suspect]
     Active Substance: BUDESONIDE\FORMOTEROL FUMARATE DIHYDRATE
     Indication: CHRONIC OBSTRUCTIVE PULMONARY DISEASE
     Dosage: 160/4.5 2 PUFFS ONE AND A HALF MINUTES APART TWICE DAILY MORNING AND NIGHT
     Route: 055

REACTIONS (7)
  - Gait disturbance [Unknown]
  - Product packaging quantity issue [Unknown]
  - Body height decreased [Unknown]
  - Pain in extremity [Unknown]
  - Weight decreased [Unknown]
  - Wrong technique in device usage process [Not Recovered/Not Resolved]
  - Arterial occlusive disease [Recovering/Resolving]

NARRATIVE: CASE EVENT DATE: 20210201
